FAERS Safety Report 8281401-0 (Version None)
Quarter: 2012Q2

REPORT INFORMATION
  Report Type: 
  Country: None (occurrence: None)
  Receive Date: 20120410
  Receipt Date: 20120410
  Transmission Date: 20120825
  Serious: Yes (Other)
  Sender: FDA-Public Use
  Company Number: None

PATIENT
  Sex: Male
  Weight: 77.1115 kg

DRUGS (2)
  1. TRAMADOL HCL [Suspect]
     Indication: BACK PAIN
     Dosage: ONE PER DAY 30 TAB ORAL
     Route: 048
     Dates: start: 20111001
  2. TRAMADOL HYDROCHLORIDE [Suspect]
     Indication: BACK PAIN
     Dosage: ONE PER DAY 30 TAB ORAL
     Route: 048
     Dates: start: 20120301

REACTIONS (1)
  - PRODUCT QUALITY ISSUE [None]
